FAERS Safety Report 9459010 (Version 1)
Quarter: 2013Q3

REPORT INFORMATION
  Report Type: Spontaneous
  Country: US (occurrence: US)
  Receive Date: 20130814
  Receipt Date: 20130814
  Transmission Date: 20140515
  Serious: Yes (Hospitalization, Other)
  Sender: FDA-Public Use
  Company Number: US-MERCK-1308USA004924

PATIENT
  Sex: Male

DRUGS (1)
  1. INTRONA [Suspect]
     Indication: MYELOPROLIFERATIVE DISORDER
     Dosage: UNK
     Dates: start: 19990101, end: 20090101

REACTIONS (3)
  - Convulsion [Unknown]
  - Memory impairment [Unknown]
  - Disease progression [Unknown]
